FAERS Safety Report 5687414-7 (Version None)
Quarter: 2008Q1

REPORT INFORMATION
  Report Type: 
  Country: None (occurrence: None)
  Receive Date: 20080328
  Receipt Date: 20061128
  Transmission Date: 20080703
  Serious: No
  Sender: FDA-Public Use
  Company Number: US-BAYER-US-2006-037271

PATIENT
  Age: 22 Year
  Sex: Female
  Weight: 95 kg

DRUGS (2)
  1. MIRENA [Suspect]
     Indication: CONTRACEPTION
     Route: 015
     Dates: start: 20061115
  2. PHENTERMINE [Concomitant]
     Route: 048

REACTIONS (2)
  - BURNING SENSATION [None]
  - PROCEDURAL PAIN [None]
